FAERS Safety Report 21402814 (Version 1)
Quarter: 2022Q4

REPORT INFORMATION
  Report Type: Spontaneous
  Country: GB (occurrence: GB)
  Receive Date: 20221003
  Receipt Date: 20221003
  Transmission Date: 20230113
  Serious: Yes (Hospitalization)
  Sender: FDA-Public Use
  Company Number: None

PATIENT
  Age: 68 Year
  Sex: Male
  Weight: 95 kg

DRUGS (1)
  1. CHLORHEXIDINE [Suspect]
     Active Substance: CHLORHEXIDINE
     Indication: Hip surgery
     Dates: start: 20220809, end: 20220809

REACTIONS (4)
  - Dermatitis contact [Recovered/Resolved]
  - Skin weeping [Recovered/Resolved]
  - Urinary retention [Recovered/Resolved]
  - Genital swelling [Recovered/Resolved]

NARRATIVE: CASE EVENT DATE: 20220809
